FAERS Safety Report 7132608-7 (Version None)
Quarter: 2010Q4

REPORT INFORMATION
  Report Type: 
  Country: None (occurrence: None)
  Receive Date: 20101202
  Receipt Date: 20101123
  Transmission Date: 20110411
  Serious: Yes (Other)
  Sender: FDA-Public Use
  Company Number: GB-PFIZER INC-2010155730

PATIENT
  Age: 58 Year
  Sex: Male
  Weight: 88.9 kg

DRUGS (1)
  1. LYRICA [Suspect]
     Indication: PAIN
     Dosage: 400 MG, UNK

REACTIONS (2)
  - ABNORMAL WEIGHT GAIN [None]
  - BODY MASS INDEX INCREASED [None]
